FAERS Safety Report 7562366-3 (Version None)
Quarter: 2011Q2

REPORT INFORMATION
  Report Type: 
  Country: None (occurrence: None)
  Receive Date: 20110614
  Receipt Date: 20110602
  Transmission Date: 20111010
  Serious: Yes (Hospitalization)
  Sender: FDA-Public Use
  Company Number: US-2011-10236

PATIENT
  Age: 37 Year
  Sex: Male

DRUGS (6)
  1. JUICE PLUS (AMYLASE, ASCORBIC ACID, CELLULASE, FOLIC ACID, LIPASE, PRO [Concomitant]
  2. CIPRO [Concomitant]
  3. LISINOPRIL [Concomitant]
  4. OPC-41061 (TOLVAPTAN) TABLET, 30MG MILLIGRAM(S) [Suspect]
     Indication: CONGENITAL CYSTIC KIDNEY DISEASE
     Dosage: 120 MG MILLIGRAM(S), DAILY DOSE, ORAL; 120 MG MILLIGRAM(S), DAILY DOSE, ORAL;
     Route: 048
     Dates: start: 20110428
  5. OPC-41061 (TOLVAPTAN) TABLET, 30MG MILLIGRAM(S) [Suspect]
     Indication: CONGENITAL CYSTIC KIDNEY DISEASE
     Dosage: 120 MG MILLIGRAM(S), DAILY DOSE, ORAL; 120 MG MILLIGRAM(S), DAILY DOSE, ORAL;
     Route: 048
     Dates: start: 20110329, end: 20110416
  6. FISH OIL [Concomitant]

REACTIONS (4)
  - RENAL FAILURE ACUTE [None]
  - ANAEMIA [None]
  - DRUG INEFFECTIVE [None]
  - ABDOMINAL PAIN [None]
